FAERS Safety Report 7671231-2 (Version None)
Quarter: 2011Q3

REPORT INFORMATION
  Report Type: 
  Country: None (occurrence: None)
  Receive Date: 20110803
  Receipt Date: 20110719
  Transmission Date: 20111222
  Serious: Yes (Other)
  Sender: FDA-Public Use
  Company Number: 1000022460

PATIENT
  Age: 83 Year
  Sex: Female

DRUGS (9)
  1. BENIDIPINE (BENIDIPINE) (BENIDIPINE) [Concomitant]
  2. THYRADIN (LEVOTHYROXINE) (LEVOTHYROXINE) [Concomitant]
  3. MEMANTINE [Suspect]
     Indication: DEMENTIA ALZHEIMER'S TYPE
     Dosage: 15 MG (15 MG,1 IN 1 D),ORAL
     Route: 048
     Dates: start: 20110625, end: 20110711
  4. EVISTA [Concomitant]
  5. LIPITOR [Concomitant]
  6. YOKU-KAN-SAN (HERBAL EXTRACT NOS) (HERBAL EXTRACT NOS) [Concomitant]
  7. ARICEPT [Concomitant]
  8. MEMANTINE [Suspect]
     Indication: DEMENTIA ALZHEIMER'S TYPE
     Dosage: ORAL
     Route: 048
     Dates: end: 20110624
  9. AMLODIPINE [Concomitant]

REACTIONS (5)
  - MALAISE [None]
  - ABNORMAL BEHAVIOUR [None]
  - TONGUE DISORDER [None]
  - ALTERED STATE OF CONSCIOUSNESS [None]
  - SOMNOLENCE [None]
